FAERS Safety Report 17514008 (Version 3)
Quarter: 2020Q2

REPORT INFORMATION
  Report Type: Spontaneous
  Country: GB (occurrence: GB)
  Receive Date: 20200306
  Receipt Date: 20200511
  Transmission Date: 20200713
  Serious: Yes (Hospitalization, Other)
  Sender: FDA-Public Use
  Company Number: NVSC2020GB034151

PATIENT
  Age: 7 Year
  Sex: Male
  Weight: 36.8 kg

DRUGS (7)
  1. METHYLPHENIDATE. [Suspect]
     Active Substance: METHYLPHENIDATE
     Dosage: 10 MG
     Route: 065
     Dates: start: 20180807, end: 20180911
  2. LISDEXAMFETAMINE [Suspect]
     Active Substance: LISDEXAMFETAMINE
     Indication: ATTENTION DEFICIT HYPERACTIVITY DISORDER
     Dosage: 30 MG, QD
     Route: 065
     Dates: start: 20180918, end: 20180918
  3. ELVANSE [Concomitant]
     Active Substance: LISDEXAMFETAMINE DIMESYLATE
     Indication: PRODUCT USED FOR UNKNOWN INDICATION
     Dosage: 30 MG
     Route: 065
  4. PROMETHAZINE [Concomitant]
     Active Substance: PROMETHAZINE HYDROCHLORIDE
     Indication: PRODUCT USED FOR UNKNOWN INDICATION
     Route: 065
  5. METHYLPHENIDATE. [Suspect]
     Active Substance: METHYLPHENIDATE
     Indication: ATTENTION DEFICIT HYPERACTIVITY DISORDER
     Dosage: 5 MG
     Route: 065
  6. ATOMOXETINE. [Concomitant]
     Active Substance: ATOMOXETINE HYDROCHLORIDE
     Indication: PRODUCT USED FOR UNKNOWN INDICATION
     Dosage: 18 MG
     Route: 065
  7. SERTRALINE [Concomitant]
     Active Substance: SERTRALINE HYDROCHLORIDE
     Indication: PRODUCT USED FOR UNKNOWN INDICATION
     Dosage: 50 MG
     Route: 065

REACTIONS (15)
  - Contraindicated product administered [Unknown]
  - Suicidal ideation [Recovered/Resolved]
  - Impulsive behaviour [Unknown]
  - Intentional self-injury [Recovered/Resolved]
  - Bipolar disorder [Unknown]
  - Autism spectrum disorder [Unknown]
  - Drug ineffective [Unknown]
  - Mania [Recovered/Resolved]
  - Headache [Unknown]
  - Anxiety [Unknown]
  - Aggression [Recovered/Resolved with Sequelae]
  - Suicidal behaviour [Unknown]
  - Psychotic disorder [Recovered/Resolved]
  - Attention deficit hyperactivity disorder [Unknown]
  - Aggression [Unknown]

NARRATIVE: CASE EVENT DATE: 20180807
